FAERS Safety Report 6486072-1 (Version None)
Quarter: 2009Q4

REPORT INFORMATION
  Report Type: 
  Country: None (occurrence: None)
  Receive Date: 20091209
  Receipt Date: 20090801
  Transmission Date: 20100525
  Serious: No
  Sender: FDA-Public Use
  Company Number: US-AMGEN-KDL358448

PATIENT
  Sex: Female

DRUGS (2)
  1. ENBREL [Suspect]
     Indication: PSORIASIS
     Dates: start: 20040801
  2. ENBREL [Suspect]
     Indication: ERYTHRODERMIC PSORIASIS

REACTIONS (4)
  - HYPERHIDROSIS [None]
  - SCAB [None]
  - SKIN DISORDER [None]
  - SKIN ULCER [None]
